FAERS Safety Report 19828760 (Version 1)
Quarter: 2021Q3

REPORT INFORMATION
  Report Type: Spontaneous
  Country: US (occurrence: US)
  Receive Date: 20210914
  Receipt Date: 20210914
  Transmission Date: 20211014
  Serious: No
  Sender: FDA-Public Use
  Company Number: US-ABBVIE-21K-163-3872900-00

PATIENT
  Sex: Female

DRUGS (1)
  1. RINVOQ [Suspect]
     Active Substance: UPADACITINIB
     Indication: RHEUMATOID ARTHRITIS
     Route: 048

REACTIONS (12)
  - Glucose-6-phosphate dehydrogenase deficiency [Unknown]
  - Hypothyroidism [Unknown]
  - Illness [Unknown]
  - Dizziness [Unknown]
  - Vomiting [Unknown]
  - Fatigue [Unknown]
  - Polychondritis [Unknown]
  - Nausea [Unknown]
  - Diarrhoea [Unknown]
  - Swelling [Unknown]
  - Intervertebral disc degeneration [Unknown]
  - Cough [Unknown]
